FAERS Safety Report 11753471 (Version 1)
Quarter: 2015Q4

REPORT INFORMATION
  Report Type: Spontaneous
  Country: AU (occurrence: AU)
  Receive Date: 20151119
  Receipt Date: 20151119
  Transmission Date: 20160304
  Serious: Yes (Hospitalization, Other)
  Sender: FDA-Public Use
  Company Number: AU-ABBVIE-14P-008-1279493-00

PATIENT
  Age: 66 Year
  Sex: Male

DRUGS (1)
  1. DUODOPA [Suspect]
     Active Substance: CARBIDOPA\LEVODOPA
     Indication: PARKINSON^S DISEASE
     Route: 050

REACTIONS (4)
  - Stoma site infection [Unknown]
  - Device leakage [Recovered/Resolved]
  - Device occlusion [Unknown]
  - Stoma site discomfort [Unknown]

NARRATIVE: CASE EVENT DATE: 20100913
